FAERS Safety Report 5710639-9 (Version None)
Quarter: 2008Q2

REPORT INFORMATION
  Report Type: 
  Country: None (occurrence: None)
  Receive Date: 20080415
  Receipt Date: 20080403
  Transmission Date: 20081010
  Serious: Yes (Hospitalization)
  Sender: FDA-Public Use
  Company Number: E2090-00423-SPO-JP

PATIENT
  Age: 66 Year
  Sex: Female

DRUGS (6)
  1. ZONISAMIDE [Suspect]
     Indication: PARKINSON'S DISEASE
     Dosage: 200 MG, ORAL
     Route: 048
  2. DOPS (DROXIDOPA) [Suspect]
     Dosage: 300 MG, ORAL
     Route: 048
  3. SINEMET [Suspect]
     Dosage: 450 MG, ORAL
     Route: 048
  4. CINAL (CINAL) [Suspect]
     Dosage: 3 GM, ORAL
     Route: 048
  5. BI SIFROL (PRAMIPEXOLE DIHYDROCHLORIDE) [Suspect]
     Dosage: 4.5 MG, ORAL
     Route: 048
  6. SYMMETREL [Suspect]
     Dosage: 150 MG, ORAL
     Route: 048

REACTIONS (3)
  - DYSSTASIA [None]
  - ERYTHROMELALGIA [None]
  - RED BLOOD CELL SEDIMENTATION RATE ABNORMAL [None]
